FAERS Safety Report 10371074 (Version 1)
Quarter: 2014Q1

REPORT INFORMATION
  Report Type: Spontaneous
  Country: US (occurrence: None)
  Receive Date: 20140306
  Receipt Date: 20140306
  Transmission Date: 20141002
  Serious: Yes (Hospitalization)
  Sender: FDA-Public Use
  Company Number: 163-21880-13083933

PATIENT
  Age: 65 Year
  Sex: Male

DRUGS (9)
  1. REVLIMID (LENALIDOMIDE) (CAPSULES) [Suspect]
     Indication: PLASMA CELL MYELOMA
     Dosage: 25 MG, 21 IN 21 D, PO
     Route: 048
     Dates: start: 20130605, end: 2013
  2. CYCLOBENZAPRINE HCL (CYCLOBENZAPRINE HYDROCHLORIDE) [Concomitant]
  3. DEXAMETHASONE [Concomitant]
  4. GLIPIZIDE ER (GLIPIZIDE) [Concomitant]
  5. LACTULOSE [Concomitant]
  6. LISINOPRIL [Concomitant]
  7. METFORMIN HCL (METFORMIN HYDROCHLORIDE) [Concomitant]
  8. ONDANSETRON HCL (ONDANSETRON HYDROCHLORIDE) [Concomitant]
  9. OXYCODONE/ACETAMINOPHEN (OXYCOCET) [Concomitant]

REACTIONS (1)
  - Influenza like illness [None]
